FAERS Safety Report 5026095-2 (Version None)
Quarter: 2006Q2

REPORT INFORMATION
  Report Type: 
  Country: None (occurrence: None)
  Receive Date: 20060612
  Receipt Date: 20060612
  Transmission Date: 20061013
  Serious: Yes (Life-Threatening, Hospitalization, Disabling, Other)
  Sender: FDA-Public Use
  Company Number: None

PATIENT
  Age: 45 Year
  Sex: Male
  Weight: 85.2762 kg

DRUGS (1)
  1. PROPECIA [Suspect]
     Indication: ALOPECIA
     Dosage: 1 MG PER DAY PO
     Route: 048
     Dates: start: 20020710, end: 20050702

REACTIONS (3)
  - ADRENOCORTICAL INSUFFICIENCY ACUTE [None]
  - IMPAIRED WORK ABILITY [None]
  - STRESS [None]
